FAERS Safety Report 22115045 (Version 1)
Quarter: 2023Q1

REPORT INFORMATION
  Report Type: Report from Study
  Country: US (occurrence: US)
  Receive Date: 20230320
  Receipt Date: 20230320
  Transmission Date: 20230417
  Serious: Yes (Hospitalization, Other)
  Sender: FDA-Public Use
  Company Number: US-MYLANLABS-2023M1028172

PATIENT
  Age: 74 Year
  Sex: Female
  Weight: 65 kg

DRUGS (4)
  1. LYRICA [Suspect]
     Active Substance: PREGABALIN
     Indication: Product used for unknown indication
     Dosage: UNK
     Route: 065
  2. GABAPENTIN [Suspect]
     Active Substance: GABAPENTIN
     Indication: Product used for unknown indication
     Dosage: UNK
     Route: 065
  3. PARSACLISIB [Suspect]
     Active Substance: PARSACLISIB
     Indication: Haematological malignancy
     Dosage: 20 MILLIGRAM (EVERY WEEK)
     Route: 048
     Dates: start: 20210412
  4. ITACITINIB [Suspect]
     Active Substance: ITACITINIB
     Indication: Haematological malignancy
     Dosage: 300 MILLIGRAM, QD
     Route: 048
     Dates: start: 20210412

REACTIONS (3)
  - Encephalopathy [Recovered/Resolved]
  - Pulmonary embolism [Not Recovered/Not Resolved]
  - Pyrexia [Recovered/Resolved]

NARRATIVE: CASE EVENT DATE: 20220228
